APPROVED DRUG PRODUCT: BETHANECHOL CHLORIDE
Active Ingredient: BETHANECHOL CHLORIDE
Strength: 10MG
Dosage Form/Route: TABLET;ORAL
Application: A084378 | Product #001
Applicant: SANDOZ INC
Approved: Approved Prior to Jan 1, 1982 | RLD: No | RS: No | Type: DISCN